FAERS Safety Report 6265819-3 (Version None)
Quarter: 2009Q3

REPORT INFORMATION
  Report Type: 
  Country: None (occurrence: None)
  Receive Date: 20090713
  Receipt Date: 20090706
  Transmission Date: 20100115
  Serious: Yes (Hospitalization)
  Sender: FDA-Public Use
  Company Number: A0796509A

PATIENT
  Age: 14 Year
  Sex: Female
  Weight: 60 kg

DRUGS (2)
  1. SEREVENT [Suspect]
     Indication: ASTHMA
     Route: 055
  2. FENOTEROL BROMHYDRATE [Suspect]
     Indication: DRUG USE FOR UNKNOWN INDICATION
     Dosage: 6DROP UNKNOWN
     Route: 055

REACTIONS (4)
  - ASTHMATIC CRISIS [None]
  - OVERDOSE [None]
  - TACHYCARDIA [None]
  - TACHYPNOEA [None]
